FAERS Safety Report 9267300 (Version 2)
Quarter: 2013Q2

REPORT INFORMATION
  Report Type: Spontaneous
  Country: US (occurrence: US)
  Receive Date: 20130502
  Receipt Date: 20130509
  Transmission Date: 20140414
  Serious: No
  Sender: FDA-Public Use
  Company Number: US-TEVA-400981USA

PATIENT
  Sex: Male
  Weight: 118.04 kg

DRUGS (14)
  1. ACTIQ [Suspect]
     Indication: SCIATICA
     Route: 048
     Dates: start: 2004, end: 200508
  2. ACTIQ [Suspect]
     Indication: BACK PAIN
  3. OXYCONTIN [Concomitant]
     Indication: PAIN
  4. DILAUDID [Concomitant]
     Indication: PAIN
  5. MS CONTIN [Concomitant]
     Indication: PAIN
  6. SOMA [Concomitant]
  7. OXYCODONE [Concomitant]
  8. METOPROLOL [Concomitant]
     Indication: HYPERTENSION
  9. LIDODERM [Concomitant]
     Indication: PAIN
  10. XANAX [Concomitant]
     Indication: ANXIETY
  11. PRILOSEC [Concomitant]
     Indication: GASTROOESOPHAGEAL REFLUX DISEASE
  12. LOMOTIL [Concomitant]
     Indication: DIARRHOEA
  13. TEMAZEPAM [Concomitant]
     Indication: SLEEP DISORDER
  14. HYOSCYAMINE [Concomitant]
     Indication: ABDOMINAL DISTENSION

REACTIONS (3)
  - Pain [Unknown]
  - Drug ineffective for unapproved indication [Unknown]
  - Off label use [Unknown]
